FAERS Safety Report 9587186 (Version 1)
Quarter: 2013Q4

REPORT INFORMATION
  Report Type: Spontaneous
  Country: CA (occurrence: CA)
  Receive Date: 20131003
  Receipt Date: 20131003
  Transmission Date: 20140711
  Serious: Yes (Other)
  Sender: FDA-Public Use
  Company Number: CA-GLAXOSMITHKLINE-A1000176A

PATIENT
  Age: 35 Year
  Sex: Female

DRUGS (12)
  1. TYKERB [Suspect]
     Indication: BREAST CANCER METASTATIC
     Dosage: 1250MG PER DAY
     Route: 048
     Dates: start: 20120614, end: 20130912
  2. NOZINAN [Concomitant]
  3. AREDIA [Concomitant]
  4. MS CONTIN [Concomitant]
  5. TAMOXIFEN [Concomitant]
  6. OXAZEPAM [Concomitant]
  7. FENTANYL [Concomitant]
  8. STATEX [Concomitant]
  9. XELODA [Concomitant]
  10. MAXERAN [Concomitant]
  11. MIRTAZAPINE [Concomitant]
  12. METHOTRIMEPRAZINE [Concomitant]

REACTIONS (16)
  - Abdominal pain upper [Not Recovered/Not Resolved]
  - Fatigue [Unknown]
  - Insomnia [Recovering/Resolving]
  - Skin fissures [Unknown]
  - Skin haemorrhage [Unknown]
  - Localised infection [Unknown]
  - Mouth ulceration [Unknown]
  - Pharyngeal ulceration [Unknown]
  - Diarrhoea [Recovered/Resolved]
  - Palmar-plantar erythrodysaesthesia syndrome [Unknown]
  - Nail disorder [Unknown]
  - Spinal pain [Unknown]
  - Nausea [Unknown]
  - Dizziness [Not Recovered/Not Resolved]
  - Labyrinthitis [Not Recovered/Not Resolved]
  - Breast cancer metastatic [Unknown]
